FAERS Safety Report 9651968 (Version 3)
Quarter: 2013Q4

REPORT INFORMATION
  Report Type: Report from Study
  Country: US (occurrence: US)
  Receive Date: 20131029
  Receipt Date: 20131202
  Transmission Date: 20140711
  Serious: Yes (Other)
  Sender: FDA-Public Use
  Company Number: US-TEVA-440579USA

PATIENT
  Age: 22 Year
  Sex: Female

DRUGS (3)
  1. CLARAVIS [Suspect]
     Dosage: 80 MILLIGRAM DAILY;
     Dates: start: 20130611, end: 20131014
  2. BIRTH CONTROL PILLS [Concomitant]
     Indication: CONTRACEPTION
     Dates: end: 201309
  3. NORPLANT [Concomitant]
     Indication: CONTRACEPTION
     Dates: start: 20131010

REACTIONS (1)
  - Unintended pregnancy [Unknown]
